FAERS Safety Report 18413942 (Version 17)
Quarter: 2021Q2

REPORT INFORMATION
  Report Type: Spontaneous
  Country: US (occurrence: US)
  Receive Date: 20201022
  Receipt Date: 20210523
  Transmission Date: 20210717
  Serious: Yes (Death, Hospitalization, Other)
  Sender: FDA-Public Use
  Company Number: US-UNITED THERAPEUTICS-UNT-2020-016126

PATIENT
  Age: 74 Year
  Sex: Male
  Weight: 79.46 kg

DRUGS (13)
  1. ORENITRAM [Suspect]
     Active Substance: TREPROSTINIL
     Indication: PULMONARY ARTERIAL HYPERTENSION
     Dosage: UNK
     Route: 048
     Dates: start: 20201008
  2. ORENITRAM [Suspect]
     Active Substance: TREPROSTINIL
     Dosage: 0.375 MG, TID
     Route: 048
  3. ORENITRAM [Suspect]
     Active Substance: TREPROSTINIL
     Dosage: 1 MG, TID
     Route: 048
  4. ORENITRAM [Suspect]
     Active Substance: TREPROSTINIL
     Dosage: 1 MG, BID
     Route: 048
  5. ORENITRAM [Suspect]
     Active Substance: TREPROSTINIL
     Indication: PULMONARY ARTERIAL HYPERTENSION
     Dosage: UNK
     Route: 048
  6. ORENITRAM [Suspect]
     Active Substance: TREPROSTINIL
     Dosage: 0.75 MG, TID
     Route: 048
  7. ORENITRAM [Suspect]
     Active Substance: TREPROSTINIL
     Indication: PULMONARY ARTERIAL HYPERTENSION
     Dosage: UNK
     Route: 048
  8. ORENITRAM [Suspect]
     Active Substance: TREPROSTINIL
     Dosage: 0.125 MG, TID
     Route: 048
  9. ORENITRAM [Suspect]
     Active Substance: TREPROSTINIL
     Indication: PULMONARY ARTERIAL HYPERTENSION
     Dosage: UNK
     Route: 048
  10. ORENITRAM [Suspect]
     Active Substance: TREPROSTINIL
     Dosage: UNK
     Route: 048
  11. ORENITRAM [Suspect]
     Active Substance: TREPROSTINIL
     Dosage: 0.875 MG, TID
     Route: 048
  12. ORENITRAM [Suspect]
     Active Substance: TREPROSTINIL
     Dosage: 1.125 MG, BID
     Route: 048
  13. ADEMPAS [Suspect]
     Active Substance: RIOCIGUAT
     Indication: PRODUCT USED FOR UNKNOWN INDICATION
     Dosage: UNK
     Route: 065

REACTIONS (27)
  - Gastric cancer [Unknown]
  - Pain in extremity [Unknown]
  - Weight decreased [Unknown]
  - Retching [Unknown]
  - Liver disorder [Unknown]
  - Frustration tolerance decreased [Unknown]
  - Abdominal discomfort [Unknown]
  - Decreased appetite [Unknown]
  - Epistaxis [Unknown]
  - Gastrointestinal necrosis [Fatal]
  - Intestinal ischaemia [Fatal]
  - Somnolence [Unknown]
  - Vomiting [Unknown]
  - Gastric disorder [Unknown]
  - Immune thrombocytopenia [Unknown]
  - Blood pressure fluctuation [Unknown]
  - Dyspnoea [Unknown]
  - Fatigue [Unknown]
  - Headache [Not Recovered/Not Resolved]
  - Nausea [Unknown]
  - Oesophageal polyp [Unknown]
  - Stress [Unknown]
  - Blood pressure increased [Recovering/Resolving]
  - Abdominal pain upper [Unknown]
  - Feeling cold [Unknown]
  - Multiple organ dysfunction syndrome [Fatal]
  - Asthenia [Unknown]

NARRATIVE: CASE EVENT DATE: 2020
